FAERS Safety Report 6731088-0 (Version None)
Quarter: 2010Q2

REPORT INFORMATION
  Report Type: 
  Country: None (occurrence: None)
  Receive Date: 20100518
  Receipt Date: 20100517
  Transmission Date: 20101027
  Serious: Yes (Death, Other)
  Sender: FDA-Public Use
  Company Number: JP-ROXANE LABORATORIES, INC.-2010-RO-00582RO

PATIENT
  Age: 68 Year
  Sex: Female

DRUGS (7)
  1. DEXAMETHASONE [Suspect]
     Indication: ANTIEMETIC SUPPORTIVE CARE
     Dosage: 24 MG
     Route: 042
  2. DEXAMETHASONE [Suspect]
     Dosage: 8 MG
     Route: 048
  3. DEXAMETHASONE [Suspect]
     Dosage: 16 MG
     Route: 048
  4. CYCLOPHOSPHAMIDE [Suspect]
     Indication: BREAST CANCER
     Dosage: 900 MG
     Route: 042
  5. GRANISETRON [Suspect]
     Indication: ANTIEMETIC SUPPORTIVE CARE
  6. DOXORUBICIN HCL [Suspect]
     Indication: BREAST CANCER
     Dosage: 90 MG
     Route: 042
  7. PROCHLORPERAZINE [Suspect]
     Indication: ANTIEMETIC SUPPORTIVE CARE

REACTIONS (4)
  - COMPLETED SUICIDE [None]
  - MAJOR DEPRESSION [None]
  - NAUSEA [None]
  - VOMITING [None]
